FAERS Safety Report 15085140 (Version 3)
Quarter: 2018Q3

REPORT INFORMATION
  Report Type: Spontaneous
  Country: US (occurrence: US)
  Receive Date: 20180628
  Receipt Date: 20180815
  Transmission Date: 20181010
  Serious: No
  Sender: FDA-Public Use
  Company Number: US-VIFOR (INTERNATIONAL) INC.-VIT-2018-06410

PATIENT
  Sex: Male

DRUGS (16)
  1. CYCLOBENZAPRINE HYDROCHLORIDE. [Concomitant]
     Active Substance: CYCLOBENZAPRINE HYDROCHLORIDE
  2. TRAMADOL HYDROCHLORIDE. [Concomitant]
     Active Substance: TRAMADOL HYDROCHLORIDE
  3. METHYLPREDNISOLONE. [Concomitant]
     Active Substance: METHYLPREDNISOLONE
  4. LISINOPRIL. [Concomitant]
     Active Substance: LISINOPRIL
  5. ALLOPURINOL. [Concomitant]
     Active Substance: ALLOPURINOL
  6. PRAVASTATIN SODIUM. [Concomitant]
     Active Substance: PRAVASTATIN SODIUM
  7. ROPINIROLE H [Concomitant]
  8. CARVEDILOL. [Concomitant]
     Active Substance: CARVEDILOL
  9. SPIRONOLACTONE. [Concomitant]
     Active Substance: SPIRONOLACTONE
  10. LORAZEPAM. [Concomitant]
     Active Substance: LORAZEPAM
  11. AMLODIPINE BESILATE [Concomitant]
     Active Substance: AMLODIPINE BESYLATE
  12. SALBUTAMOL SULFATE [Concomitant]
     Active Substance: ALBUTEROL SULFATE
  13. SPIRIVA [Concomitant]
     Active Substance: TIOTROPIUM BROMIDE MONOHYDRATE
  14. COLECALCIFEROL [Concomitant]
     Active Substance: CHOLECALCIFEROL
  15. VELTASSA [Suspect]
     Active Substance: PATIROMER
     Indication: HYPERKALAEMIA
     Route: 048
     Dates: start: 20180112
  16. BUDESONIDE. [Concomitant]
     Active Substance: BUDESONIDE

REACTIONS (3)
  - Muscle spasms [Unknown]
  - Gait disturbance [Unknown]
  - Drug dose omission [Unknown]

NARRATIVE: CASE EVENT DATE: 2018
